FAERS Safety Report 24867654 (Version 1)
Quarter: 2025Q1

REPORT INFORMATION
  Report Type: Spontaneous
  Country: US (occurrence: US)
  Receive Date: 20250121
  Receipt Date: 20250121
  Transmission Date: 20250409
  Serious: Yes (Life-Threatening, Hospitalization)
  Sender: MYLAN
  Company Number: US-MYLANLABS-2025M1003164

PATIENT
  Age: 82 Year
  Sex: Male

DRUGS (1)
  1. HEPARIN [Suspect]
     Active Substance: HEPARIN SODIUM
     Indication: Pulmonary embolism
     Route: 042

REACTIONS (3)
  - Pericardial effusion [Recovering/Resolving]
  - Right ventricular failure [Unknown]
  - Intrapericardial thrombosis [Recovered/Resolved]
